FAERS Safety Report 23540659 (Version 1)
Quarter: 2024Q1

REPORT INFORMATION
  Report Type: Spontaneous
  Country: US (occurrence: US)
  Receive Date: 20240219
  Receipt Date: 20240219
  Transmission Date: 20240410
  Serious: Yes (Other)
  Sender: FDA-Public Use
  Company Number: US-SUNOVION-2024SUN000077

PATIENT

DRUGS (6)
  1. APTIOM [Suspect]
     Active Substance: ESLICARBAZEPINE ACETATE
     Dosage: 400 MG
     Route: 048
  2. APTIOM [Suspect]
     Active Substance: ESLICARBAZEPINE ACETATE
     Dosage: 200 MG
     Route: 048
  3. APTIOM [Suspect]
     Active Substance: ESLICARBAZEPINE ACETATE
     Dosage: 300 MG
     Route: 048
  4. XCOPRI [Concomitant]
     Active Substance: CENOBAMATE
     Dosage: 200 MG
     Route: 065
  5. XCOPRI [Concomitant]
     Active Substance: CENOBAMATE
     Dosage: 100 MG
     Route: 065
  6. DEPAKOTE [Concomitant]
     Active Substance: DIVALPROEX SODIUM
     Dosage: UNK
     Route: 065

REACTIONS (5)
  - Seizure [Recovering/Resolving]
  - Generalised tonic-clonic seizure [Recovering/Resolving]
  - Personality change [Unknown]
  - Insomnia [Unknown]
  - Prescribed underdose [Unknown]
